FAERS Safety Report 10064658 (Version 1)
Quarter: 2014Q2

REPORT INFORMATION
  Report Type: Spontaneous
  Country: FR (occurrence: FR)
  Receive Date: 20140408
  Receipt Date: 20140408
  Transmission Date: 20141212
  Serious: Yes (Hospitalization)
  Sender: FDA-Public Use
  Company Number: FR-NOVOPROD-405082

PATIENT
  Age: 59 Year
  Sex: Female

DRUGS (7)
  1. NOVORAPID [Suspect]
     Indication: TYPE 2 DIABETES MELLITUS
     Dosage: UNK
     Route: 058
     Dates: end: 20140204
  2. NOVORAPID [Interacting]
     Dosage: UNK
     Route: 058
  3. GELTIM LP [Interacting]
     Indication: GLAUCOMA
     Dosage: 0.4 MG, QD  (1 MG/G)
     Route: 065
     Dates: start: 20140131, end: 20140204
  4. KARDEGIC [Concomitant]
     Dosage: 75 MG, QD
     Route: 065
  5. EFFERALGAN                         /00020001/ [Concomitant]
     Dosage: 1 G, QD
     Route: 065
  6. AZOPT [Concomitant]
     Dosage: 10 MG/ML
     Route: 065
  7. MONOPOST [Concomitant]
     Dosage: UNK
     Route: 065
     Dates: start: 20140131

REACTIONS (3)
  - Bradycardia [Recovered/Resolved]
  - Hypoglycaemic coma [Recovered/Resolved]
  - Drug interaction [Recovered/Resolved]
